APPROVED DRUG PRODUCT: HEXASCRUB
Active Ingredient: HEXACHLOROPHENE
Strength: 3%
Dosage Form/Route: SPONGE;TOPICAL
Application: N018363 | Product #001
Applicant: PROFESSIONAL DISPOSABLES INC
Approved: Approved Prior to Jan 1, 1982 | RLD: No | RS: No | Type: DISCN